FAERS Safety Report 14838575 (Version 1)
Quarter: 2018Q2

REPORT INFORMATION
  Report Type: Spontaneous
  Country: GB (occurrence: GB)
  Receive Date: 20180502
  Receipt Date: 20180502
  Transmission Date: 20180711
  Serious: Yes (Hospitalization)
  Sender: FDA-Public Use
  Company Number: GB-TEVA-2018-GB-888157

PATIENT
  Age: 80 Year
  Sex: Female
  Weight: 58.4 kg

DRUGS (4)
  1. BISOPROLOL [Concomitant]
     Active Substance: BISOPROLOL
  2. DIAZEPAM. [Concomitant]
     Active Substance: DIAZEPAM
  3. WARFARIN SODIUM. [Concomitant]
     Active Substance: WARFARIN SODIUM
  4. SERTRALINE [Suspect]
     Active Substance: SERTRALINE HYDROCHLORIDE
     Indication: ANXIETY
     Dosage: 50 MILLIGRAM DAILY;
     Route: 048
     Dates: start: 20180105, end: 20180105

REACTIONS (1)
  - Loss of consciousness [Recovered/Resolved]
